FAERS Safety Report 18439955 (Version 1)
Quarter: 2020Q4

REPORT INFORMATION
  Report Type: Spontaneous
  Country: IT (occurrence: IT)
  Receive Date: 20201029
  Receipt Date: 20201029
  Transmission Date: 20210114
  Serious: No
  Sender: FDA-Public Use
  Company Number: IT-LUPIN PHARMACEUTICALS INC.-2020-03620

PATIENT
  Age: 55 Year
  Sex: Male

DRUGS (8)
  1. PREGABALIN. [Suspect]
     Active Substance: PREGABALIN
     Indication: MOVEMENT DISORDER
  2. PREGABALIN. [Suspect]
     Active Substance: PREGABALIN
     Indication: PAIN IN EXTREMITY
     Dosage: UNK
     Route: 048
  3. TRAZODONE [Suspect]
     Active Substance: TRAZODONE HYDROCHLORIDE
     Indication: PAIN IN EXTREMITY
     Dosage: UNK
     Route: 048
  4. DULOXETINE. [Suspect]
     Active Substance: DULOXETINE
     Indication: MOVEMENT DISORDER
  5. CLONAZEPAM. [Suspect]
     Active Substance: CLONAZEPAM
     Indication: MOVEMENT DISORDER
  6. TRAZODONE [Suspect]
     Active Substance: TRAZODONE HYDROCHLORIDE
     Indication: MOVEMENT DISORDER
  7. DULOXETINE. [Suspect]
     Active Substance: DULOXETINE
     Indication: PAIN IN EXTREMITY
     Dosage: UNK
     Route: 048
  8. CLONAZEPAM. [Suspect]
     Active Substance: CLONAZEPAM
     Indication: PAIN IN EXTREMITY
     Dosage: UNK
     Route: 048

REACTIONS (1)
  - Drug ineffective [Unknown]
